FAERS Safety Report 6842127-0 (Version None)
Quarter: 2010Q3

REPORT INFORMATION
  Report Type: 
  Country: None (occurrence: None)
  Receive Date: 20100714
  Receipt Date: 20070721
  Transmission Date: 20110219
  Serious: No
  Sender: FDA-Public Use
  Company Number: US-PFIZER INC-2007061636

PATIENT
  Sex: Female
  Weight: 77.2 kg

DRUGS (7)
  1. CHANTIX [Suspect]
     Indication: SMOKING CESSATION THERAPY
     Dates: start: 20070715
  2. HYDROCHLOROTHIAZIDE [Concomitant]
  3. ATENOLOL [Concomitant]
  4. ACETYLSALICYLIC ACID [Concomitant]
  5. VITAMINS [Concomitant]
  6. CALCIUM [Concomitant]
  7. PREVACID [Concomitant]

REACTIONS (4)
  - DIARRHOEA [None]
  - FLATULENCE [None]
  - NAUSEA [None]
  - VOMITING [None]
